FAERS Safety Report 24670642 (Version 1)
Quarter: 2024Q4

REPORT INFORMATION
  Report Type: Report from Study
  Country: DE (occurrence: DE)
  Receive Date: 20241127
  Receipt Date: 20241127
  Transmission Date: 20250115
  Serious: No
  Sender: ROCHE
  Company Number: DE-ROCHE-10000139877

PATIENT
  Age: 49 Year
  Sex: Male

DRUGS (5)
  1. OCREVUS [Suspect]
     Active Substance: OCRELIZUMAB
     Indication: Primary progressive multiple sclerosis
     Route: 042
     Dates: start: 20240729
  2. AMLODIPINE [Concomitant]
     Active Substance: AMLODIPINE BESYLATE
     Dosage: 1-0-1
  3. L-THYROX JOD HEXAL [Concomitant]
     Dosage: 1-0-0
  4. DULOXETINE [Concomitant]
     Active Substance: DULOXETINE
     Dosage: 1-0-0
  5. VITAMIN D [Concomitant]
     Active Substance: VITAMIN D NOS

REACTIONS (2)
  - Dizziness [Recovering/Resolving]
  - Herpes virus infection [Recovering/Resolving]

NARRATIVE: CASE EVENT DATE: 20240817
